FAERS Safety Report 9765078 (Version 1)
Quarter: 2013Q4

REPORT INFORMATION
  Report Type: Spontaneous
  Country: US (occurrence: None)
  Receive Date: 20131216
  Receipt Date: 20131216
  Transmission Date: 20140711
  Serious: Yes (Disabling, Other)
  Sender: FDA-Public Use
  Company Number: None

PATIENT
  Age: 37 Year
  Sex: Female

DRUGS (1)
  1. XEOMIN [Suspect]
     Indication: SKIN COSMETIC PROCEDURE
     Dates: start: 20131213, end: 20131213

REACTIONS (1)
  - Headache [None]
